FAERS Safety Report 17958975 (Version 1)
Quarter: 2020Q2

REPORT INFORMATION
  Report Type: Spontaneous
  Country: US (occurrence: US)
  Receive Date: 20200629
  Receipt Date: 20200629
  Transmission Date: 20200714
  Serious: Yes (Hospitalization)
  Sender: FDA-Public Use
  Company Number: US-ARBOR PHARMACEUTICALS, LLC-US-2020ARB000493

PATIENT
  Age: 36 Year
  Sex: Male

DRUGS (1)
  1. GABAPENTIN. [Suspect]
     Active Substance: GABAPENTIN
     Indication: ALCOHOL WITHDRAWAL SYNDROME
     Dosage: 600 MG, EVERY 6 HOURS FOR 3 DAYS

REACTIONS (1)
  - Drug-induced liver injury [Recovered/Resolved]
